FAERS Safety Report 7726296-6 (Version None)
Quarter: 2011Q3

REPORT INFORMATION
  Report Type: 
  Country: None (occurrence: None)
  Receive Date: 20110902
  Receipt Date: 20110901
  Transmission Date: 20111222
  Serious: Yes (Death, Life-Threatening, Hospitalization)
  Sender: FDA-Public Use
  Company Number: JP-B.I. PHARMACEUTICALS,INC./RIDGEFIELD-2011-BP-19838NB

PATIENT
  Sex: Female
  Weight: 39 kg

DRUGS (11)
  1. DIGOXIN [Concomitant]
     Indication: CARDIAC FAILURE CONGESTIVE
     Dosage: 0.125 MG
     Route: 048
     Dates: start: 19911023
  2. TRAZODONE HYDROCHLORIDE [Concomitant]
     Indication: DEPRESSION
     Dosage: 50 MG
     Route: 048
  3. MAGNESIUM OXIDE [Concomitant]
     Dosage: 1 G
     Route: 048
     Dates: start: 20110110
  4. PRADAXA [Suspect]
     Dosage: 220 MG
     Route: 048
     Dates: start: 20110714, end: 20110731
  5. LASIX [Concomitant]
     Indication: CARDIAC FAILURE CONGESTIVE
     Dosage: 60 MG
     Route: 048
     Dates: start: 19911023
  6. ALDACTONE [Concomitant]
     Indication: CARDIAC FAILURE CONGESTIVE
     Dosage: 2.5 MG
     Route: 048
     Dates: start: 19911023
  7. FERROUS CITRATE [Concomitant]
     Indication: NEPHROGENIC ANAEMIA
     Dosage: 50 MG
     Route: 048
  8. SIGMART [Concomitant]
     Indication: CARDIAC FAILURE CONGESTIVE
     Dosage: 10 MG
     Route: 048
     Dates: start: 19911023
  9. ALLOPURINOL [Concomitant]
     Indication: GOUT
     Dosage: 200 MG
     Route: 048
     Dates: start: 19911023
  10. TICLOPIDINE HCL [Suspect]
     Indication: CARDIAC FAILURE CONGESTIVE
     Dosage: 200 MG
     Route: 048
     Dates: start: 19911023
  11. SHIGYAKU-SAN [Concomitant]
     Indication: AFFECT LABILITY
     Dosage: 7.5 G
     Route: 048
     Dates: start: 20110611

REACTIONS (6)
  - DECREASED APPETITE [None]
  - ANAEMIA [None]
  - MELAENA [None]
  - MENINGITIS [None]
  - GASTROINTESTINAL HAEMORRHAGE [None]
  - ALTERED STATE OF CONSCIOUSNESS [None]
